FAERS Safety Report 24655839 (Version 1)
Quarter: 2024Q4

REPORT INFORMATION
  Report Type: Spontaneous
  Country: ES (occurrence: ES)
  Receive Date: 20241124
  Receipt Date: 20241124
  Transmission Date: 20250114
  Serious: Yes (Other)
  Sender: JOHNSON AND JOHNSON
  Company Number: None

PATIENT
  Age: 24 Year
  Sex: Female

DRUGS (11)
  1. BOSENTAN [Suspect]
     Active Substance: BOSENTAN
     Indication: Pulmonary hypertension
     Dosage: 125 MG, QD || DOSE UNIT FREQUENCY: 125 MG-MILLIGRAMS || DOSE PER DOSE: 125 MG-MILLIGRAMS || NO. OF S
     Route: 048
  2. TREPROSTINILO (2971A) [Concomitant]
     Indication: Pulmonary hypertension
     Dosage: 2.85 MG, UNK || DOSE UNIT FREQUENCY: 2.85 MG-MILLIGRAMS || DOSE PER DOSE: 2.85 MG-MILLIGRAMS
     Route: 058
  3. TADALAFIL [Concomitant]
     Active Substance: TADALAFIL
     Indication: Pulmonary hypertension
     Dosage: 40 MG, QD || DOSE UNIT FREQUENCY: 40 MG-MILLIGRAMS || DOSE PER DOSE: 40 MG-MILLIGRAMS || NO. OF SOCK
     Route: 048
  4. CALCIFEDIOL [Concomitant]
     Active Substance: CALCIFEDIOL
     Indication: Product used for unknown indication
     Dosage: ONE AMPOULE/MONTH
     Route: 048
  5. ALDACTONE 100 mg FILM-COATED TABLETS, 500 tablets [Concomitant]
     Indication: Product used for unknown indication
     Dosage: 100 MG, QD || DOSE UNIT FREQUENCY: 100 MG-MILLIGRAMS || DOSE PER DOSE: 100 MG-MILLIGRAMS || NO. OF S
     Route: 048
  6. FUROSEMIDE [Concomitant]
     Active Substance: FUROSEMIDE
     Indication: Product used for unknown indication
     Dosage: 40 MG, QD || DOSE UNIT FREQUENCY: 40 MG-MILLIGRAMS || DOSE PER DOSE: 40 MG-MILLIGRAMS || NO. OF SOCK
     Route: 048
  7. ACENOCOUMAROL [Concomitant]
     Active Substance: ACENOCOUMAROL
     Indication: Product used for unknown indication
     Dosage: 40 MG, QD
  8. TARDYFERON 80 mg COATED TABLETS, 30 tablets [Concomitant]
     Indication: Product used for unknown indication
     Dosage: UNK UNK, QD || NO. OF SOCKETS PER FREQUENCY UNIT: 1 || FREQUENCY UNIT: 1 DAY
  9. AMIODARONE [Concomitant]
     Active Substance: AMIODARONE
     Indication: Pulmonary hypertension
     Dosage: UNK UNK, QD
     Dates: end: 201502
  10. ACENOCOUMAROL [Concomitant]
     Active Substance: ACENOCOUMAROL
     Indication: Atrial fibrillation
     Dosage: UNK UNK, QD
  11. PANTOPRAZOLE [Concomitant]
     Active Substance: PANTOPRAZOLE
     Indication: Product used for unknown indication
     Dosage: 20 MG, QD || DOSE UNIT FREQUENCY: 20 MG-MILLIGRAMS || DOSE PER DOSE: 20 MG-MILLIGRAMS || NO. OF SOCK
     Route: 048

REACTIONS (1)
  - Arrhythmia [Not Recovered/Not Resolved]
